FAERS Safety Report 6154100-9 (Version None)
Quarter: 2009Q2

REPORT INFORMATION
  Report Type: 
  Country: None (occurrence: None)
  Receive Date: 20090414
  Receipt Date: 20090406
  Transmission Date: 20091009
  Serious: Yes (Disabling)
  Sender: FDA-Public Use
  Company Number: GB-ROCHE-608893

PATIENT
  Age: 34 Year
  Sex: Female
  Weight: 106 kg

DRUGS (4)
  1. XENICAL [Suspect]
     Dosage: DRUG WITHDRAWN ACTIVE CONSTITUENT: ORLISTAT
     Route: 048
     Dates: start: 20090105, end: 20090108
  2. BECLOMETHASONE DIPROPIONATE [Concomitant]
     Route: 055
     Dates: start: 20010101
  3. METFORMIN HCL [Concomitant]
     Route: 048
     Dates: start: 20040101
  4. SALBUTAMOL [Concomitant]
     Indication: ASTHMA
     Route: 055
     Dates: start: 20040101

REACTIONS (2)
  - DYSPNOEA [None]
  - WHEEZING [None]
